FAERS Safety Report 6761550-6 (Version None)
Quarter: 2010Q2

REPORT INFORMATION
  Report Type: 
  Country: None (occurrence: None)
  Receive Date: 20100609
  Receipt Date: 20100601
  Transmission Date: 20101027
  Serious: Yes (Hospitalization)
  Sender: FDA-Public Use
  Company Number: US-BIOGENIDEC-2010BI002974

PATIENT
  Age: 52 Year
  Sex: Female

DRUGS (2)
  1. AVONEX [Suspect]
     Indication: MULTIPLE SCLEROSIS
     Route: 030
     Dates: start: 20071020
  2. AVONEX [Suspect]
     Route: 030
     Dates: start: 19961001, end: 20060531

REACTIONS (5)
  - COMA [None]
  - CONCUSSION [None]
  - RESPIRATORY FAILURE [None]
  - ROAD TRAFFIC ACCIDENT [None]
  - SPLENECTOMY [None]
